FAERS Safety Report 4912961-2 (Version None)
Quarter: 2006Q1

REPORT INFORMATION
  Report Type: 
  Country: None (occurrence: None)
  Receive Date: 20060210
  Receipt Date: 20060127
  Transmission Date: 20060701
  Serious: Yes (Death, Hospitalization)
  Sender: FDA-Public Use
  Company Number: L05-USA-03935-49

PATIENT
  Age: 41 Year
  Sex: Female

DRUGS (7)
  1. ESCITALOPRAM OXALATE [Suspect]
  2. AMBIEN [Suspect]
  3. ATENOLOL [Suspect]
  4. KLONOPIN [Suspect]
  5. NEURONTIN [Suspect]
  6. TOPAMAX [Suspect]
  7. XANAX [Suspect]

REACTIONS (5)
  - CARDIAC ARREST [None]
  - COMPLETED SUICIDE [None]
  - ELECTROENCEPHALOGRAM ABNORMAL [None]
  - LOSS OF CONSCIOUSNESS [None]
  - RESPIRATORY ARREST [None]
